FAERS Safety Report 10484830 (Version 2)
Quarter: 2014Q4

REPORT INFORMATION
  Report Type: Spontaneous
  Country: ES (occurrence: ES)
  Receive Date: 20140930
  Receipt Date: 20141011
  Transmission Date: 20150528
  Serious: Yes (Life-Threatening, Hospitalization, Other)
  Sender: FDA-Public Use
  Company Number: PHHY2014ES124226

PATIENT
  Age: 65 Year
  Sex: Male

DRUGS (3)
  1. TASIGNA [Suspect]
     Active Substance: NILOTINIB
     Indication: CHRONIC MYELOID LEUKAEMIA
     Dosage: 300 MG, BID
     Route: 048
     Dates: start: 20140709, end: 20140730
  2. TASIGNA [Suspect]
     Active Substance: NILOTINIB
     Dosage: 150 MG, BID
     Route: 048
  3. GEMFIBROCIL [Concomitant]

REACTIONS (6)
  - Acute myocardial infarction [Recovered/Resolved]
  - Cerebrovascular accident [Unknown]
  - Asthenia [Unknown]
  - Chest pain [Unknown]
  - Aphasia [Unknown]
  - Dysarthria [Unknown]

NARRATIVE: CASE EVENT DATE: 20140725
